FAERS Safety Report 8494668-0 (Version None)
Quarter: 2012Q3

REPORT INFORMATION
  Report Type: 
  Country: None (occurrence: None)
  Receive Date: 20120709
  Receipt Date: 20120705
  Transmission Date: 20120928
  Serious: Yes (Death, Other)
  Sender: FDA-Public Use
  Company Number: PHHY2011DK82989

PATIENT
  Sex: Female
  Weight: 95 kg

DRUGS (1)
  1. LEVONORGESTREL AND ETHINYL ESTRADIOL [Suspect]
     Indication: ORAL CONTRACEPTION
     Route: 048
     Dates: start: 20071001, end: 20110901

REACTIONS (12)
  - CHEST PAIN [None]
  - EPIGASTRIC DISCOMFORT [None]
  - SENSATION OF HEAVINESS [None]
  - THROMBOSIS [None]
  - ACUTE MYOCARDIAL INFARCTION [None]
  - LOSS OF CONSCIOUSNESS [None]
  - VOMITING [None]
  - ARTERIOSCLEROSIS CORONARY ARTERY [None]
  - CARDIAC ARREST [None]
  - CAROTID ARTERY THROMBOSIS [None]
  - ABDOMINAL PAIN UPPER [None]
  - HYPERHIDROSIS [None]
